FAERS Safety Report 5706370-6 (Version None)
Quarter: 2008Q2

REPORT INFORMATION
  Report Type: 
  Country: None (occurrence: None)
  Receive Date: 20080415
  Receipt Date: 20080411
  Transmission Date: 20081010
  Serious: Yes (Hospitalization)
  Sender: FDA-Public Use
  Company Number: US-GILEAD-2008-0015847

PATIENT
  Sex: Male
  Weight: 94.886 kg

DRUGS (3)
  1. LETAIRIS [Suspect]
     Indication: PULMONARY HYPERTENSION
     Route: 048
     Dates: start: 20080201
  2. PREDNISONE [Concomitant]
     Route: 048
  3. SYNTHROID [Concomitant]
     Route: 048

REACTIONS (1)
  - HYPOTENSION [None]
